FAERS Safety Report 6754312-7 (Version None)
Quarter: 2010Q2

REPORT INFORMATION
  Report Type: 
  Country: None (occurrence: None)
  Receive Date: 20100601
  Receipt Date: 20100520
  Transmission Date: 20101027
  Serious: Yes (Hospitalization)
  Sender: FDA-Public Use
  Company Number: 2010SP028666

PATIENT
  Age: 59 Year
  Sex: Male

DRUGS (4)
  1. TEMOZOLOMIDE [Suspect]
     Indication: B-CELL UNCLASSIFIABLE LYMPHOMA HIGH GRADE
     Dosage: 150 MG/M2;QD
  2. TEMOZOLOMIDE [Suspect]
     Indication: CENTRAL NERVOUS SYSTEM LYMPHOMA
     Dosage: 150 MG/M2;QD
  3. COTRIM [Concomitant]
  4. RITUXIMAB [Concomitant]

REACTIONS (6)
  - IMMUNOSUPPRESSION [None]
  - LYMPHOPENIA [None]
  - PATHOGEN RESISTANCE [None]
  - PNEUMONIA CYTOMEGALOVIRAL [None]
  - PSEUDOMONAS INFECTION [None]
  - SUPERINFECTION [None]
